FAERS Safety Report 5491430-8 (Version None)
Quarter: 2007Q4

REPORT INFORMATION
  Report Type: 
  Country: None (occurrence: None)
  Receive Date: 20071018
  Receipt Date: 20071009
  Transmission Date: 20080405
  Serious: Yes (Life-Threatening)
  Sender: FDA-Public Use
  Company Number: 2007AL004293

PATIENT
  Age: 49 Year
  Sex: Male

DRUGS (4)
  1. CITALOPRAM HYDROBROMIDE [Suspect]
     Indication: DEPRESSION
     Dosage: BID;PO
     Route: 048
     Dates: start: 20041206, end: 20070926
  2. MIRTAZAPINE [Concomitant]
  3. ALENDRONIC ACID [Concomitant]
  4. PROCHLORPERAZINE [Concomitant]

REACTIONS (2)
  - INFERIOR VENA CAVAL OCCLUSION [None]
  - RETROPERITONEAL FIBROSIS [None]
